FAERS Safety Report 5086875-4 (Version None)
Quarter: 2006Q3

REPORT INFORMATION
  Report Type: 
  Country: None (occurrence: None)
  Receive Date: 20060823
  Receipt Date: 20060523
  Transmission Date: 20061208
  Serious: Yes (Other)
  Sender: FDA-Public Use
  Company Number: JP-MERCK-0606USA02042

PATIENT
  Age: 73 Year
  Sex: Male

DRUGS (3)
  1. PROPECIA [Suspect]
     Indication: ALOPECIA
     Route: 048
     Dates: start: 20051220, end: 20060710
  2. HARNAL [Concomitant]
     Route: 048
  3. [THERAPY UNSPECIFIED] [Concomitant]
     Indication: ALOPECIA
     Route: 065

REACTIONS (3)
  - ERECTILE DYSFUNCTION [None]
  - PNEUMONIA [None]
  - PROSTATE CANCER [None]
